FAERS Safety Report 14912993 (Version 2)
Quarter: 2020Q3

REPORT INFORMATION
  Report Type: Report from Study
  Country: US (occurrence: US)
  Receive Date: 20180518
  Receipt Date: 20181105
  Transmission Date: 20201105
  Serious: Yes (Other)
  Sender: FDA-Public Use
  Company Number: US-ROCHE-2121650

PATIENT
  Age: 28 Year
  Sex: Female
  Weight: 62.8 kg

DRUGS (4)
  1. TRASTUZUMAB. [Suspect]
     Active Substance: TRASTUZUMAB
     Dosage: LOADING DOSE 8 MG/KG WILL BE ADMINISTERED ON CYCLE 1, DAY 1.
     Route: 042
     Dates: start: 20180322
  2. TASELISIB. [Suspect]
     Active Substance: TASELISIB
     Route: 048
     Dates: start: 20170322
  3. PERTUZUMAB. [Suspect]
     Active Substance: PERTUZUMAB
     Dosage: LOADING DOSE PERTUZUMAB (840MG) WILL BE ADMINISTERED ON CYCLE 1, DAY 1.
     Route: 042
     Dates: start: 20170322
  4. FULVESTRANT. [Concomitant]
     Active Substance: FULVESTRANT
     Route: 065
     Dates: start: 20180322

REACTIONS (10)
  - Dehydration [Not Recovered/Not Resolved]
  - Mucosal inflammation [Not Recovered/Not Resolved]
  - Decreased appetite [Unknown]
  - Hypokalaemia [Recovered/Resolved]
  - Abdominal pain [Recovered/Resolved]
  - Fatigue [Not Recovered/Not Resolved]
  - Abdominal distension [Not Recovered/Not Resolved]
  - Diarrhoea [Not Recovered/Not Resolved]
  - Pyrexia [Not Recovered/Not Resolved]
  - Colitis [Not Recovered/Not Resolved]

NARRATIVE: CASE EVENT DATE: 20180504
